FAERS Safety Report 9924403 (Version 2)
Quarter: 2014Q1

REPORT INFORMATION
  Report Type: Spontaneous
  Country: US (occurrence: None)
  Receive Date: 20140220
  Receipt Date: 20140314
  Transmission Date: 20141002
  Serious: Yes (Hospitalization)
  Sender: FDA-Public Use
  Company Number: 2013RT000007

PATIENT
  Age: 11 Year
  Sex: Female

DRUGS (2)
  1. PROCYSBI [Suspect]
     Indication: CYSTINOSIS
     Route: 048
     Dates: start: 201307, end: 201401
  2. CYSTAGON [Suspect]
     Indication: CYSTINOSIS

REACTIONS (6)
  - Skin odour abnormal [None]
  - Breath odour [None]
  - Gastroenteritis viral [None]
  - Skin striae [None]
  - Condition aggravated [None]
  - Dehydration [None]
